FAERS Safety Report 6699292-8 (Version None)
Quarter: 2010Q2

REPORT INFORMATION
  Report Type: 
  Country: None (occurrence: None)
  Receive Date: 20100427
  Receipt Date: 20100415
  Transmission Date: 20101027
  Serious: Yes (Hospitalization)
  Sender: FDA-Public Use
  Company Number: FR-ELI_LILLY_AND_COMPANY-FR201004003943

PATIENT
  Sex: Male

DRUGS (3)
  1. PROZAC [Suspect]
     Indication: DEPRESSION
     Dates: start: 20070101, end: 20090402
  2. NORSET [Concomitant]
     Dosage: UNK, UNK
     Route: 048
     Dates: end: 20090402
  3. ABILIFY [Concomitant]
     Indication: BIPOLAR DISORDER
     Route: 048
     Dates: end: 20090402

REACTIONS (4)
  - ABDOMINAL PAIN UPPER [None]
  - CHOLECYSTITIS [None]
  - HEPATITIS [None]
  - VOMITING [None]
